FAERS Safety Report 7354787-9 (Version None)
Quarter: 2011Q1

REPORT INFORMATION
  Report Type: 
  Country: None (occurrence: None)
  Receive Date: 20110316
  Receipt Date: 20100707
  Transmission Date: 20110831
  Serious: No
  Sender: FDA-Public Use
  Company Number: US-KINGPHARMUSA00001-K201000849

PATIENT
  Sex: Male
  Weight: 63.039 kg

DRUGS (4)
  1. ALTACE [Suspect]
     Dosage: 25 MG, QD
     Route: 048
  2. NIASPAN [Suspect]
     Indication: BLOOD CHOLESTEROL INCREASED
     Dosage: 500 MG, QD
     Dates: start: 20100505
  3. METOPROLOL SUCCINATE [Concomitant]
     Dosage: 25 MG, QD
  4. PANTOPRAZOLE [Concomitant]
     Dosage: 40 MG, QD

REACTIONS (1)
  - FLUSHING [None]
